FAERS Safety Report 10340066 (Version 1)
Quarter: 2014Q3

REPORT INFORMATION
  Report Type: Report from Study
  Country: KR (occurrence: KR)
  Receive Date: 20140724
  Receipt Date: 20140724
  Transmission Date: 20150326
  Serious: Yes (Death)
  Sender: FDA-Public Use
  Company Number: KR-SA-2014SA095216

PATIENT
  Age: 69 Year
  Sex: Female
  Weight: 57 kg

DRUGS (1)
  1. LANTUS [Suspect]
     Active Substance: INSULIN GLARGINE
     Indication: DIABETES MELLITUS
     Dosage: DOSE:12 UNIT(S)
     Route: 058
     Dates: start: 20140612, end: 201407

REACTIONS (2)
  - Blood pressure decreased [Fatal]
  - Fall [Fatal]

NARRATIVE: CASE EVENT DATE: 20140712
